FAERS Safety Report 18606838 (Version 3)
Quarter: 2021Q2

REPORT INFORMATION
  Report Type: Report from Study
  Country: US (occurrence: US)
  Receive Date: 20201211
  Receipt Date: 20210430
  Transmission Date: 20210717
  Serious: Yes (Hospitalization, Other)
  Sender: FDA-Public Use
  Company Number: US-TAKEDA-US201934698

PATIENT
  Sex: Female

DRUGS (1)
  1. HUMAN NORMAL IMMUNOGLOBULIN; LIQUID [Suspect]
     Active Substance: HUMAN IMMUNOGLOBULIN G
     Indication: SELECTIVE IGG SUBCLASS DEFICIENCY
     Dosage: 46 GRAM, UNKNOWN
     Route: 042

REACTIONS (19)
  - Tongue disorder [Unknown]
  - Pain in extremity [Unknown]
  - Sepsis [Unknown]
  - Neutropenia [Unknown]
  - Malaise [Unknown]
  - Chills [Unknown]
  - Nasopharyngitis [Unknown]
  - Neuromyopathy [Unknown]
  - Pyrexia [Unknown]
  - Headache [Not Recovered/Not Resolved]
  - Muscular weakness [Unknown]
  - Nausea [Unknown]
  - Dyspnoea [Unknown]
  - Bone pain [Not Recovered/Not Resolved]
  - Limb injury [Unknown]
  - Fatigue [Unknown]
  - Diarrhoea [Unknown]
  - Flushing [Unknown]
  - Herpes zoster [Unknown]
